FAERS Safety Report 9314665 (Version 1)
Quarter: 2013Q2

REPORT INFORMATION
  Report Type: Other
  Country: JP (occurrence: JP)
  Receive Date: 20130529
  Receipt Date: 20130529
  Transmission Date: 20140414
  Serious: Yes (Other)
  Sender: FDA-Public Use
  Company Number: JP-BRISTOL-MYERS SQUIBB COMPANY-18918532

PATIENT
  Age: 73 Year
  Sex: Male

DRUGS (5)
  1. CARBOPLATIN [Suspect]
     Indication: LUNG NEOPLASM MALIGNANT
     Dosage: AUC 6
  2. PACLITAXEL [Suspect]
     Indication: LUNG NEOPLASM MALIGNANT
     Dosage: 1DF: 80MG/M SUP(2)
  3. BEVACIZUMAB [Suspect]
     Indication: LUNG NEOPLASM MALIGNANT
  4. PEMETREXED DISODIUM [Concomitant]
     Indication: LUNG NEOPLASM MALIGNANT
  5. TEGAFUR + GIMERACIL + OTERACIL POTASSIUM [Concomitant]
     Indication: LUNG NEOPLASM MALIGNANT

REACTIONS (1)
  - Pneumothorax [Recovering/Resolving]
